FAERS Safety Report 9689470 (Version 2)
Quarter: 2013Q4

REPORT INFORMATION
  Report Type: Report from Study
  Country: JP (occurrence: JP)
  Receive Date: 20131114
  Receipt Date: 20131114
  Transmission Date: 20140711
  Serious: Yes (Other)
  Sender: FDA-Public Use
  Company Number: JP-TAKEDA-2013TJP001985

PATIENT
  Age: 79 Year
  Sex: Male
  Weight: 52 kg

DRUGS (3)
  1. LANSOPRAZOLE [Suspect]
     Indication: PROPHYLAXIS AGAINST GASTROINTESTINAL ULCER
     Dosage: 15 MG, QD
     Route: 048
     Dates: start: 20120809
  2. BAYASPIRIN [Concomitant]
     Indication: THROMBOSIS PROPHYLAXIS
     Dosage: 100 MG,1 DAY, START: }=3 M BEFORE START OF TAKEPRON
     Route: 048
     Dates: end: 20130627
  3. MICAMLO [Concomitant]
     Dosage: 1 DF, 1 DAY, START:BEFORE START OF TAKEPRON
     Route: 048

REACTIONS (2)
  - Subdural haematoma [Recovering/Resolving]
  - Condition aggravated [Recovering/Resolving]
